FAERS Safety Report 6750005-0 (Version None)
Quarter: 2010Q2

REPORT INFORMATION
  Report Type: 
  Country: None (occurrence: None)
  Receive Date: 20100601
  Receipt Date: 20100521
  Transmission Date: 20101027
  Serious: Yes (Life-Threatening)
  Sender: FDA-Public Use
  Company Number: GXKR2010AT05799

PATIENT
  Age: 56 Year
  Sex: Male

DRUGS (10)
  1. FLUDARABINE (NGX) [Suspect]
     Indication: PROLYMPHOCYTIC LEUKAEMIA
     Dosage: 20 MG/M2/DAY
     Route: 042
     Dates: start: 20091015, end: 20091015
  2. FLUDARABINE (NGX) [Suspect]
     Dosage: 20 MG/M2/DAY
     Route: 042
     Dates: start: 20091113, end: 20091113
  3. FLUDARABINE (NGX) [Suspect]
     Dosage: 20 MG/M2/DAY
     Route: 042
     Dates: start: 20091211, end: 20091211
  4. FLUDARABINE (NGX) [Suspect]
     Dosage: 20 MG/M2/DAY
     Route: 042
     Dates: start: 20100108, end: 20100108
  5. MABCAMPATH [Suspect]
     Indication: PROLYMPHOCYTIC LEUKAEMIA
     Dosage: 70 MG/DAY
     Route: 058
     Dates: start: 20090211
  6. MITOXANTRONE [Concomitant]
     Indication: PROLYMPHOCYTIC LEUKAEMIA
     Dosage: 600 MG/M2, UNK
     Route: 065
     Dates: start: 20091015
  7. CYCLOPHOSPHAMIDE [Concomitant]
     Indication: PROLYMPHOCYTIC LEUKAEMIA
     Dosage: 700 MG/M2, ONCE/SINGLE
     Dates: start: 20091015, end: 20091015
  8. CYCLOPHOSPHAMIDE [Concomitant]
     Dosage: 700 MG/M2, ONCE/SINGLE
     Dates: start: 20091113, end: 20091113
  9. CYCLOPHOSPHAMIDE [Concomitant]
     Dosage: 700 MG/M2, ONCE/SINGLE
     Dates: start: 20091211, end: 20091211
  10. CYCLOPHOSPHAMIDE [Concomitant]
     Dosage: 700 MG/M2, ONCE/SINGLE
     Dates: start: 20100108, end: 20100108

REACTIONS (1)
  - GUILLAIN-BARRE SYNDROME [None]
